FAERS Safety Report 11682299 (Version 1)
Quarter: 2015Q4

REPORT INFORMATION
  Report Type: Spontaneous
  Country: US (occurrence: None)
  Receive Date: 20151028
  Receipt Date: 20151028
  Transmission Date: 20160304
  Serious: Yes (Death)
  Sender: FDA-Public Use
  Company Number: None

PATIENT
  Age: 73 Year
  Sex: Female
  Weight: 71 kg

DRUGS (17)
  1. FLUOROURACIL 50 MG/ML [Suspect]
     Active Substance: FLUOROURACIL
     Indication: ANAL CANCER
     Dosage: 96 HR INFUSION
     Route: 042
     Dates: start: 20150928, end: 20151002
  2. VITAMIN D3 [Concomitant]
     Active Substance: CHOLECALCIFEROL
  3. BACTRIM DS [Concomitant]
     Active Substance: SULFAMETHOXAZOLE\TRIMETHOPRIM
  4. TYLENOL WITH CODEINE [Concomitant]
     Active Substance: ACETAMINOPHEN\CODEINE PHOSPHATE
  5. LECITHIN [Concomitant]
     Active Substance: LECITHIN
  6. LIDOCAINE. [Concomitant]
     Active Substance: LIDOCAINE
  7. VICON FORTE [Concomitant]
     Active Substance: MINERALS\VITAMINS
  8. NIACIN. [Concomitant]
     Active Substance: NIACIN
  9. OMEGA 3 [Concomitant]
     Active Substance: OMEGA-3 FATTY ACIDS
  10. MITOMYCIN 20 MG [Suspect]
     Active Substance: MITOMYCIN
     Indication: RECTAL CANCER
     Dosage: 16.3 MG, ONCE ON DAY 1
     Route: 042
     Dates: start: 20150928, end: 20150928
  11. ONDANSETRON ODT [Concomitant]
     Active Substance: ONDANSETRON
  12. PROMETHAZINE [Concomitant]
     Active Substance: PROMETHAZINE\PROMETHAZINE HYDROCHLORIDE
  13. VITAMIN C [Concomitant]
     Active Substance: ASCORBIC ACID
  14. NYSTATIN. [Concomitant]
     Active Substance: NYSTATIN
  15. VITAMIN B12 [Concomitant]
     Active Substance: CYANOCOBALAMIN
  16. CIPRO XR [Concomitant]
     Active Substance: CIPROFLOXACIN\CIPROFLOXACIN HYDROCHLORIDE
  17. VITAMIN B COMPLEX [Concomitant]
     Active Substance: CYANOCOBALAMIN\DEXPANTHENOL\NIACINAMIDE\PYRIDOXINE HYDROCHLORIDE\RIBOFLAVIN 5^-PHOSPHATE SODIUM\THIAMINE HYDROCHLORIDE\VITAMIN B COMPLEX

REACTIONS (14)
  - Blister [None]
  - Dihydropyrimidine dehydrogenase deficiency [None]
  - Gastrointestinal toxicity [None]
  - Conjunctivitis [None]
  - Pancytopenia [None]
  - Skin necrosis [None]
  - Toxic epidermal necrolysis [None]
  - Skin toxicity [None]
  - Nausea [None]
  - Pneumonia aspiration [None]
  - Mucosal inflammation [None]
  - Diarrhoea [None]
  - Depressed level of consciousness [None]
  - Staphylococcal scalded skin syndrome [None]

NARRATIVE: CASE EVENT DATE: 20150929
